FAERS Safety Report 5511670-9 (Version None)
Quarter: 2007Q4

REPORT INFORMATION
  Report Type: 
  Country: None (occurrence: None)
  Receive Date: 20071109
  Receipt Date: 20071030
  Transmission Date: 20080405
  Serious: Yes (Hospitalization, Disabling, Other)
  Sender: FDA-Public Use
  Company Number: US-BAYER-200713562BCC

PATIENT
  Age: 78 Year
  Sex: Female
  Weight: 52 kg

DRUGS (27)
  1. ASPIRIN [Suspect]
     Indication: ANTIPLATELET THERAPY
     Route: 048
     Dates: start: 20051227
  2. ASPIRIN [Suspect]
     Dosage: TOTAL DAILY DOSE: 81 MG  UNIT DOSE: 81 MG
  3. ANGIOMAX [Suspect]
     Indication: THROMBOLYSIS
     Route: 040
     Dates: start: 20051227, end: 20051227
  4. PLAVIX [Suspect]
     Indication: ANTIPLATELET THERAPY
     Dosage: TOTAL DAILY DOSE: 75 MG  UNIT DOSE: 75 MG
  5. ZOLOFT [Concomitant]
     Dates: end: 20051227
  6. SERTRALINE [Concomitant]
  7. AMIODARONE HCL [Concomitant]
  8. PANTOPRAZOLE SODIUM [Concomitant]
  9. COLACE [Concomitant]
  10. RITALIN [Concomitant]
  11. NOVOLIN R [Concomitant]
  12. BACTRIM DS [Concomitant]
  13. HUMULIN R [Concomitant]
  14. LOPRESSOR [Concomitant]
  15. TYLENOL W/ CODEINE NO. 3 [Concomitant]
  16. LASIX [Concomitant]
  17. NEURONTIN [Concomitant]
  18. CRESTOR [Concomitant]
  19. ASCORBIC ACID [Concomitant]
  20. VANCOMYCIN [Concomitant]
  21. NOVOLON [Concomitant]
  22. FERROUS SULFATE TAB [Concomitant]
  23. POTASSIUM CHLORIDE [Concomitant]
  24. MAGNESIUM SULFATE [Concomitant]
  25. MUPIROCIN [Concomitant]
  26. CLOPIDOGREL [Concomitant]
  27. HEPARIN [Concomitant]
     Route: 040

REACTIONS (11)
  - ACIDOSIS [None]
  - ACOUSTIC NEUROMA [None]
  - CEREBROVASCULAR ACCIDENT [None]
  - FAECALOMA [None]
  - HAEMORRHAGE [None]
  - HAEMORRHAGE SUBCUTANEOUS [None]
  - OPERATIVE HAEMORRHAGE [None]
  - RENAL FAILURE ACUTE [None]
  - RESPIRATORY DISTRESS [None]
  - SEPSIS [None]
  - THALAMIC INFARCTION [None]
